FAERS Safety Report 21733288 (Version 1)
Quarter: 2022Q4

REPORT INFORMATION
  Report Type: Spontaneous
  Country: US (occurrence: None)
  Receive Date: 20221214
  Receipt Date: 20221214
  Transmission Date: 20230113
  Serious: Yes (Life-Threatening, Hospitalization, Other)
  Sender: FDA-Public Use
  Company Number: None

PATIENT
  Age: 58 Year
  Sex: Female
  Weight: 103.5 kg

DRUGS (4)
  1. DECADRON [Suspect]
     Active Substance: DEXAMETHASONE
     Indication: Product used for unknown indication
     Dates: start: 20221012
  2. NEXIUM [Concomitant]
  3. LOSARTAN [Concomitant]
     Active Substance: LOSARTAN
  4. ATORVASTATIN [Concomitant]
     Active Substance: ATORVASTATIN

REACTIONS (7)
  - Dyspepsia [None]
  - Infusion related reaction [None]
  - Pharyngeal hypoaesthesia [None]
  - Haemoptysis [None]
  - Acute coronary syndrome [None]
  - Atrial flutter [None]
  - Presyncope [None]

NARRATIVE: CASE EVENT DATE: 20221012
